FAERS Safety Report 7706031-8 (Version None)
Quarter: 2011Q3

REPORT INFORMATION
  Report Type: 
  Country: None (occurrence: None)
  Receive Date: 20110824
  Receipt Date: 20110819
  Transmission Date: 20111222
  Serious: Yes (Death, Hospitalization, Other)
  Sender: FDA-Public Use
  Company Number: PHHY2011IT71591

PATIENT
  Age: 5 Day
  Sex: Male

DRUGS (1)
  1. METHERGINE [Suspect]
     Dosage: 15 DROPS
     Route: 048

REACTIONS (27)
  - CYANOSIS [None]
  - BRONCHOSPASM [None]
  - GENERAL PHYSICAL CONDITION ABNORMAL [None]
  - APNOEA [None]
  - VENOUS INSUFFICIENCY [None]
  - GASTROINTESTINAL HYPERMOTILITY [None]
  - AREFLEXIA [None]
  - RESPIRATION ABNORMAL [None]
  - WRONG DRUG ADMINISTERED [None]
  - DYSPNOEA [None]
  - PERIPHERAL COLDNESS [None]
  - ERGOT POISONING [None]
  - MYDRIASIS [None]
  - DIARRHOEA [None]
  - TACHYPNOEA [None]
  - HYPERAESTHESIA [None]
  - DEATH [None]
  - HYPERTONIA [None]
  - BRADYCARDIA [None]
  - DECREASED APPETITE [None]
  - RALES [None]
  - OPISTHOTONUS [None]
  - VOMITING [None]
  - SCLERODERMA [None]
  - MUSCLE CONTRACTIONS INVOLUNTARY [None]
  - PALLOR [None]
  - OVERDOSE [None]
